FAERS Safety Report 5256887-6 (Version None)
Quarter: 2007Q1

REPORT INFORMATION
  Report Type: 
  Country: None (occurrence: None)
  Receive Date: 20070306
  Receipt Date: 20070227
  Transmission Date: 20070707
  Serious: Yes (Other)
  Sender: FDA-Public Use
  Company Number: US-MERCK-0701USA03679

PATIENT
  Age: 48 Year
  Sex: Female
  Weight: 45 kg

DRUGS (5)
  1. JANUVIA [Suspect]
     Indication: DIABETES MELLITUS NON-INSULIN-DEPENDENT
     Route: 048
     Dates: start: 20070101
  2. METFORMIN [Concomitant]
     Route: 065
  3. DIOVAN HCT [Concomitant]
     Route: 065
  4. LIPITOR [Concomitant]
     Route: 065
  5. PRECOSE [Concomitant]
     Route: 065

REACTIONS (4)
  - HEADACHE [None]
  - INFLUENZA LIKE ILLNESS [None]
  - PHARYNGITIS [None]
  - UPPER RESPIRATORY TRACT INFECTION [None]
